FAERS Safety Report 15325079 (Version 1)
Quarter: 2018Q3

REPORT INFORMATION
  Report Type: Spontaneous
  Country: US (occurrence: US)
  Receive Date: 20180822
  Receipt Date: 20180822
  Transmission Date: 20181010
  Serious: Yes (Other)
  Sender: FDA-Public Use
  Company Number: None

PATIENT
  Age: 66 Year
  Sex: Female
  Weight: 108.86 kg

DRUGS (1)
  1. VALSARTAN TAB 160MG [Suspect]
     Active Substance: VALSARTAN
     Indication: HYPERTENSION
     Dosage: ?          QUANTITY:90 TAB.;?
     Route: 048
     Dates: start: 20180513, end: 20180810

REACTIONS (10)
  - Skin lesion [None]
  - Skin burning sensation [None]
  - Skin disorder [None]
  - Pemphigoid [None]
  - Rash pruritic [None]
  - Scab [None]
  - Blister rupture [None]
  - Pain of skin [None]
  - Blister [None]
  - Autoimmune disorder [None]

NARRATIVE: CASE EVENT DATE: 20180702
